FAERS Safety Report 6073024-9 (Version None)
Quarter: 2009Q1

REPORT INFORMATION
  Report Type: 
  Country: None (occurrence: None)
  Receive Date: 20090211
  Receipt Date: 20090205
  Transmission Date: 20090719
  Serious: Yes (Hospitalization)
  Sender: FDA-Public Use
  Company Number: JP-RANBAXY-2008RR-20106

PATIENT
  Age: 82 Year
  Sex: Male

DRUGS (11)
  1. MELOXICAM [Suspect]
     Indication: ENZYME ABNORMALITY
     Dosage: 10 MG, UNK
     Dates: start: 20070713, end: 20070731
  2. OMEPRAZOLE [Suspect]
     Indication: ENZYME ABNORMALITY
     Dosage: 20 MG, QD
     Dates: start: 20070709, end: 20070724
  3. WARFARIN SODIUM [Suspect]
     Indication: EMBOLISM
     Dosage: 3 MG, QD
     Dates: start: 20070314
  4. WARFARIN SODIUM [Suspect]
     Dosage: 1 MG, QD
     Dates: start: 20070719
  5. WARFARIN SODIUM [Suspect]
     Dosage: 2 MG, QD
     Dates: start: 20070724
  6. WARFARIN SODIUM [Suspect]
     Dosage: 1.5 MG, QD
     Dates: start: 20070730, end: 20070731
  7. WARFARIN SODIUM [Suspect]
     Dosage: 1 MG, QD
     Dates: start: 20070802
  8. S-1 [Suspect]
     Dosage: 80 MG, QD
     Dates: start: 20070521
  9. GEMCITABINE [Concomitant]
     Indication: THROMBOSIS
     Dosage: UNK
     Dates: start: 20070122
  10. VITAMIN K [Concomitant]
     Dosage: 10 MG, UNK
  11. HEPARIN [Concomitant]
     Dosage: 15000 IU, UNK
     Dates: start: 20070713, end: 20070726

REACTIONS (4)
  - COAGULOPATHY [None]
  - DRUG INTERACTION [None]
  - HAEMATURIA [None]
  - HAEMORRHAGE [None]
